FAERS Safety Report 7791693-X (Version None)
Quarter: 2011Q4

REPORT INFORMATION
  Report Type: 
  Country: None (occurrence: None)
  Receive Date: 20111003
  Receipt Date: 20110923
  Transmission Date: 20120403
  Serious: Yes (Other)
  Sender: FDA-Public Use
  Company Number: US-JNJFOC-20110911729

PATIENT
  Sex: Male
  Weight: 90.72 kg

DRUGS (10)
  1. FENTANYL-100 [Suspect]
     Indication: BACK PAIN
     Route: 062
     Dates: start: 20110101, end: 20110701
  2. BLOOD PRESSURE MEDICATION NOS [Concomitant]
     Indication: BLOOD PRESSURE
     Route: 048
     Dates: start: 20010101
  3. FENTANYL-100 [Suspect]
     Indication: NECK PAIN
     Route: 062
     Dates: start: 20110101, end: 20110101
  4. FENTANYL-100 [Suspect]
     Indication: BACK PAIN
     Route: 062
     Dates: start: 20110101, end: 20110101
  5. DURAGESIC-100 [Suspect]
     Indication: BACK PAIN
     Route: 062
     Dates: start: 20110701
  6. DURAGESIC-100 [Suspect]
     Indication: NECK PAIN
     Route: 062
     Dates: start: 20110701
  7. GOUT MEDICATIONS [Concomitant]
     Indication: GOUT
     Route: 048
     Dates: start: 20010101
  8. DILAUDID [Concomitant]
     Indication: PAIN
     Route: 048
     Dates: start: 20100401
  9. FENTANYL-100 [Suspect]
     Indication: NECK PAIN
     Route: 062
     Dates: start: 20110101, end: 20110701
  10. NEXIUM [Concomitant]
     Indication: GASTROOESOPHAGEAL REFLUX DISEASE
     Route: 048

REACTIONS (13)
  - INAPPROPRIATE SCHEDULE OF DRUG ADMINISTRATION [None]
  - FEELING ABNORMAL [None]
  - BODY HEIGHT DECREASED [None]
  - PRODUCT QUALITY ISSUE [None]
  - APPLICATION SITE ERYTHEMA [None]
  - PRURITUS [None]
  - DRUG ADMINISTERED AT INAPPROPRIATE SITE [None]
  - APPLICATION SITE IRRITATION [None]
  - APPLICATION SITE RASH [None]
  - EUPHORIC MOOD [None]
  - WRONG TECHNIQUE IN DRUG USAGE PROCESS [None]
  - TREMOR [None]
  - GOUT [None]
